FAERS Safety Report 6139209-8 (Version None)
Quarter: 2009Q2

REPORT INFORMATION
  Report Type: 
  Country: None (occurrence: None)
  Receive Date: 20090401
  Receipt Date: 20090325
  Transmission Date: 20091009
  Serious: Yes (Congenital Anomaly, Other)
  Sender: FDA-Public Use
  Company Number: US-PFIZER INC-2007095385

PATIENT
  Sex: Female

DRUGS (1)
  1. ZOLOFT [Suspect]
     Dosage: 50-100 MG
     Route: 064
     Dates: start: 19940101, end: 19990601

REACTIONS (17)
  - ANXIETY [None]
  - ATRIAL SEPTAL DEFECT [None]
  - CERUMEN IMPACTION [None]
  - DENTAL CARIES [None]
  - DILATATION VENTRICULAR [None]
  - DRUG EXPOSURE DURING PREGNANCY [None]
  - EAR INFECTION [None]
  - ENAMEL ANOMALY [None]
  - FOETAL ARRHYTHMIA [None]
  - GASTROENTERITIS [None]
  - HEADACHE [None]
  - MATERNAL DRUGS AFFECTING FOETUS [None]
  - MIGRAINE [None]
  - PREMATURE LABOUR [None]
  - PULMONARY VALVE INCOMPETENCE [None]
  - SUPRAVENTRICULAR EXTRASYSTOLES [None]
  - TRICUSPID VALVE INCOMPETENCE [None]
